FAERS Safety Report 11861110 (Version 1)
Quarter: 2015Q4

REPORT INFORMATION
  Report Type: Spontaneous
  Country: US (occurrence: US)
  Receive Date: 20151222
  Receipt Date: 20151222
  Transmission Date: 20160305
  Serious: No
  Sender: FDA-Public Use
  Company Number: US-AVANIR PHARMACEUTICALS, INC.-2011NUEUSA00025

PATIENT
  Age: 56 Year
  Sex: Female
  Weight: 63.49 kg

DRUGS (8)
  1. NUEDEXTA [Suspect]
     Active Substance: DEXTROMETHORPHAN HYDROBROMIDE\QUINIDINE SULFATE
     Indication: DEPRESSION
     Dosage: 1 CAP, BID
     Route: 048
     Dates: start: 20110624, end: 20110627
  2. METOPROLOL [Concomitant]
     Active Substance: METOPROLOL
     Dosage: 50 MG, BID
     Route: 048
  3. PLAVIX [Concomitant]
     Active Substance: CLOPIDOGREL BISULFATE
     Dosage: 75 MG, QD
     Route: 048
  4. WELCHOL [Concomitant]
     Active Substance: COLESEVELAM HYDROCHLORIDE
     Dosage: 650 MG, UNK
     Route: 048
  5. PRAVASTATIN [Concomitant]
     Active Substance: PRAVASTATIN\PRAVASTATIN SODIUM
     Dosage: 20 MG, QD
     Route: 048
  6. AMLODIPINE [Concomitant]
     Active Substance: AMLODIPINE BESYLATE
     Dosage: 5 MG, QD
     Route: 048
  7. KLONOPIN [Concomitant]
     Active Substance: CLONAZEPAM
     Dosage: 0.1 MG, PRN
     Route: 048
  8. NUEDEXTA [Suspect]
     Active Substance: DEXTROMETHORPHAN HYDROBROMIDE\QUINIDINE SULFATE
     Indication: AGITATION
     Dosage: 1 CAP, QD
     Route: 048
     Dates: start: 20110616, end: 20110623

REACTIONS (6)
  - Dizziness [Not Recovered/Not Resolved]
  - Asthenia [Not Recovered/Not Resolved]
  - Blood pressure increased [Not Recovered/Not Resolved]
  - Heart rate decreased [Not Recovered/Not Resolved]
  - Syncope [Not Recovered/Not Resolved]
  - Somnolence [Not Recovered/Not Resolved]

NARRATIVE: CASE EVENT DATE: 201106
